FAERS Safety Report 5620501-8 (Version None)
Quarter: 2008Q1

REPORT INFORMATION
  Report Type: 
  Country: None (occurrence: None)
  Receive Date: 20080208
  Receipt Date: 20080204
  Transmission Date: 20080703
  Serious: Yes (Hospitalization, Disabling)
  Sender: FDA-Public Use
  Company Number: JP-BOEHRINGER INGELHEIM GMBH, GERMANY-2008-BP-00647NB

PATIENT
  Sex: Female
  Weight: 45 kg

DRUGS (7)
  1. BI-SIFROL TABLETS [Suspect]
     Indication: PARKINSON'S DISEASE
     Route: 048
     Dates: start: 20070820, end: 20071207
  2. CARBIDOPA AND LEVODOPA [Concomitant]
     Indication: PARKINSON'S DISEASE
     Route: 048
     Dates: start: 20040802
  3. STOBRUN [Concomitant]
     Indication: PARKINSON'S DISEASE
     Route: 048
     Dates: start: 20040802
  4. GASMOTIN [Concomitant]
     Indication: STOMACH DISCOMFORT
     Route: 048
     Dates: start: 20040802
  5. LANDSEN [Concomitant]
     Indication: MUSCLE SPASMS
     Route: 048
     Dates: start: 20070316
  6. SELBEX [Concomitant]
     Indication: STOMACH DISCOMFORT
     Route: 048
     Dates: start: 20040802
  7. SENNARIDE [Concomitant]
     Indication: CONSTIPATION
     Route: 048
     Dates: start: 20040802

REACTIONS (6)
  - AKATHISIA [None]
  - ANKLE FRACTURE [None]
  - CELLULITIS [None]
  - DELIRIUM [None]
  - OEDEMA PERIPHERAL [None]
  - OSTEOMYELITIS [None]
